FAERS Safety Report 6651902-7 (Version None)
Quarter: 2010Q1

REPORT INFORMATION
  Report Type: 
  Country: None (occurrence: None)
  Receive Date: 20100325
  Receipt Date: 20100323
  Transmission Date: 20100710
  Serious: Yes (Other)
  Sender: FDA-Public Use
  Company Number: ES-EISAI INC.-E2020-06273-SPO-ES

PATIENT
  Age: 87 Year
  Sex: Female

DRUGS (4)
  1. ARICEPT [Suspect]
     Route: 048
     Dates: end: 20100101
  2. ARICEPT [Suspect]
     Route: 048
     Dates: start: 20100101
  3. OMEPRAZOLE [Concomitant]
     Route: 048
  4. LANACORDIN PEDIATRICO [Concomitant]
     Route: 048

REACTIONS (2)
  - AGGRESSION [None]
  - CONDITION AGGRAVATED [None]
